FAERS Safety Report 5456924-X (Version None)
Quarter: 2007Q3

REPORT INFORMATION
  Report Type: 
  Country: None (occurrence: None)
  Receive Date: 20070918
  Receipt Date: 20061207
  Transmission Date: 20080115
  Serious: No
  Sender: FDA-Public Use
  Company Number: US-ASTRAZENECA-2006UW27250

PATIENT
  Age: 54 Year
  Sex: Female
  Weight: 87.5 kg

DRUGS (2)
  1. SEROQUEL [Suspect]
     Indication: BIPOLAR DISORDER
     Route: 048
     Dates: start: 20061205, end: 20061205
  2. SEROQUEL [Suspect]
     Route: 048
     Dates: start: 20061206

REACTIONS (4)
  - AGITATION [None]
  - CRYING [None]
  - ILL-DEFINED DISORDER [None]
  - MOOD ALTERED [None]
